FAERS Safety Report 24067636 (Version 1)
Quarter: 2024Q3

REPORT INFORMATION
  Report Type: Spontaneous
  Country: US (occurrence: US)
  Receive Date: 20240710
  Receipt Date: 20240710
  Transmission Date: 20241016
  Serious: Yes (Hospitalization, Other)
  Sender: RANBAXY
  Company Number: US-SUN PHARMACEUTICAL INDUSTRIES LTD-2024R1-455639

PATIENT
  Age: 59 Year
  Sex: Female

DRUGS (2)
  1. ASPIRIN [Suspect]
     Active Substance: ASPIRIN
     Indication: Cerebrovascular accident
     Dosage: UNK
     Route: 065
  2. DIGOXIN [Suspect]
     Active Substance: DIGOXIN
     Indication: Cerebrovascular accident
     Dosage: UNK
     Route: 065

REACTIONS (4)
  - Non-compaction cardiomyopathy [Unknown]
  - Unresponsive to stimuli [Unknown]
  - Embolic stroke [Unknown]
  - Condition aggravated [Unknown]
